FAERS Safety Report 25151949 (Version 1)
Quarter: 2025Q2

REPORT INFORMATION
  Report Type: Spontaneous
  Country: US (occurrence: US)
  Receive Date: 20250402
  Receipt Date: 20250402
  Transmission Date: 20250717
  Serious: Yes (Life-Threatening, Hospitalization)
  Sender: ROCHE
  Company Number: US-BoehringerIngelheim-2025-BI-018901

PATIENT
  Age: 28 Year
  Sex: Female

DRUGS (1)
  1. TENECTEPLASE [Suspect]
     Active Substance: TENECTEPLASE
     Indication: Cerebral artery occlusion
     Route: 042

REACTIONS (1)
  - Subarachnoid haemorrhage [Recovering/Resolving]
